FAERS Safety Report 5507539-6 (Version None)
Quarter: 2007Q4

REPORT INFORMATION
  Report Type: 
  Country: None (occurrence: None)
  Receive Date: 20071106
  Receipt Date: 20071031
  Transmission Date: 20080405
  Serious: Yes (Other)
  Sender: FDA-Public Use
  Company Number: US-AVENTIS-200717714US

PATIENT
  Age: 19 Year
  Sex: Male

DRUGS (2)
  1. KETEK [Suspect]
     Indication: MALAISE
     Dosage: DOSE: UNK
     Dates: start: 20051001
  2. KETEK [Suspect]
     Dosage: DOSE: UNK
     Dates: start: 20051001

REACTIONS (10)
  - ASTHENIA [None]
  - FATIGUE [None]
  - HEPATIC ENZYME INCREASED [None]
  - HEPATITIS [None]
  - HYPERHIDROSIS [None]
  - JAUNDICE [None]
  - LETHARGY [None]
  - NAUSEA [None]
  - PYREXIA [None]
  - VOMITING [None]
